FAERS Safety Report 5410125-X (Version None)
Quarter: 2007Q3

REPORT INFORMATION
  Report Type: 
  Country: None (occurrence: None)
  Receive Date: 20070713
  Receipt Date: 20070405
  Transmission Date: 20080115
  Serious: No
  Sender: FDA-Public Use
  Company Number: 2007SP001240

PATIENT
  Age: 60 Year
  Sex: Female

DRUGS (5)
  1. LUNESTA [Suspect]
     Indication: INSOMNIA
     Dosage: 2 MG;ORAL
     Route: 048
     Dates: start: 20061201
  2. ZOLOFT [Concomitant]
  3. BENICAR [Concomitant]
  4. HALDOL [Concomitant]
  5. XANAX [Concomitant]

REACTIONS (5)
  - DYSGEUSIA [None]
  - DYSPNOEA [None]
  - MULTIPLE CHEMICAL SENSITIVITY [None]
  - NAUSEA [None]
  - PAROSMIA [None]
